FAERS Safety Report 16241658 (Version 1)
Quarter: 2019Q2

REPORT INFORMATION
  Report Type: Spontaneous
  Country: CN (occurrence: CN)
  Receive Date: 20190426
  Receipt Date: 20190426
  Transmission Date: 20190711
  Serious: Yes (Other)
  Sender: FDA-Public Use
  Company Number: CN-ROCHE-2306466

PATIENT
  Age: 50 Year
  Sex: Female
  Weight: 50 kg

DRUGS (14)
  1. CYCLOPHOSPHAMIDE. [Concomitant]
     Active Substance: CYCLOPHOSPHAMIDE
     Indication: INVASIVE DUCTAL BREAST CARCINOMA
     Dosage: FOR 8 CYCLES
     Route: 065
     Dates: start: 2013, end: 2014
  2. PACLITAXEL ALBUMIN [Concomitant]
     Active Substance: PACLITAXEL
     Indication: INVASIVE DUCTAL BREAST CARCINOMA
     Route: 065
     Dates: start: 20190103
  3. EPIRUBICIN [Concomitant]
     Active Substance: EPIRUBICIN
     Indication: INVASIVE DUCTAL BREAST CARCINOMA
     Dosage: FOR 8 CYCLES
     Route: 065
     Dates: start: 2013, end: 2014
  4. GEMCITABINE [Concomitant]
     Active Substance: GEMCITABINE\GEMCITABINE HYDROCHLORIDE
     Indication: INVASIVE DUCTAL BREAST CARCINOMA
     Dosage: FOR 3 CYCLES
     Route: 065
     Dates: start: 20170711, end: 20180501
  5. VINORELBINE [Concomitant]
     Active Substance: VINORELBINE\VINORELBINE TARTRATE
     Indication: INVASIVE DUCTAL BREAST CARCINOMA
     Dosage: FOR 2 CYCLES
     Route: 065
     Dates: start: 20180507, end: 20180529
  6. PACLITAXEL. [Concomitant]
     Active Substance: PACLITAXEL
     Route: 065
     Dates: start: 20180726, end: 20181101
  7. LAPATINIB [Concomitant]
     Active Substance: LAPATINIB
     Indication: INVASIVE DUCTAL BREAST CARCINOMA
     Route: 048
     Dates: start: 20180726, end: 20181101
  8. CISPLATIN. [Concomitant]
     Active Substance: CISPLATIN
     Indication: INVASIVE DUCTAL BREAST CARCINOMA
     Dosage: FOR 2 CYCLES
     Route: 065
     Dates: start: 20180507, end: 20180529
  9. HERCEPTIN [Suspect]
     Active Substance: TRASTUZUMAB
     Dosage: FOR 2 CYCLES
     Route: 065
     Dates: start: 20180507, end: 20180529
  10. HERCEPTIN [Suspect]
     Active Substance: TRASTUZUMAB
     Route: 065
     Dates: start: 20190103
  11. CAPECITABINE. [Suspect]
     Active Substance: CAPECITABINE
     Indication: INVASIVE DUCTAL BREAST CARCINOMA
     Route: 048
     Dates: start: 201711, end: 201804
  12. PACLITAXEL. [Concomitant]
     Active Substance: PACLITAXEL
     Dosage: FOR 3 CYCLES
     Route: 065
     Dates: start: 20170711, end: 20180501
  13. HERCEPTIN [Suspect]
     Active Substance: TRASTUZUMAB
     Indication: INVASIVE DUCTAL BREAST CARCINOMA
     Dosage: FOR 2 CYCLES
     Route: 065
     Dates: start: 20170711, end: 20180501
  14. PACLITAXEL. [Concomitant]
     Active Substance: PACLITAXEL
     Indication: INVASIVE DUCTAL BREAST CARCINOMA
     Dosage: FOR 8 CYCLES
     Route: 065
     Dates: start: 2013, end: 2014

REACTIONS (3)
  - Pericardial effusion [Unknown]
  - Sinusitis [Unknown]
  - Nasal turbinate hypertrophy [Unknown]

NARRATIVE: CASE EVENT DATE: 2018
